FAERS Safety Report 7672619-6 (Version None)
Quarter: 2011Q3

REPORT INFORMATION
  Report Type: 
  Country: None (occurrence: None)
  Receive Date: 20110809
  Receipt Date: 20110802
  Transmission Date: 20111222
  Serious: Yes (Hospitalization, Other)
  Sender: FDA-Public Use
  Company Number: ES-TYCO HEALTHCARE/MALLINCKRODT-T201101497

PATIENT
  Age: 50 Year
  Sex: Female

DRUGS (2)
  1. OPTIRAY ULTRAJECT 350 [Suspect]
     Indication: COMPUTERISED TOMOGRAM
     Dosage: 100 ML, SINGLE
  2. CHEMOTHERAPEUTICS NOS [Concomitant]

REACTIONS (3)
  - INJECTION SITE EXTRAVASATION [None]
  - DRUG ADMINISTRATION ERROR [None]
  - COMPARTMENT SYNDROME [None]
